FAERS Safety Report 6094297-2 (Version None)
Quarter: 2009Q1

REPORT INFORMATION
  Report Type: 
  Country: None (occurrence: None)
  Receive Date: 20090223
  Receipt Date: 20090210
  Transmission Date: 20090719
  Serious: Yes (Other)
  Sender: FDA-Public Use
  Company Number: KR-1168615

PATIENT
  Age: 71 Year
  Sex: Female

DRUGS (1)
  1. MIOSTAT [Suspect]
     Dosage: INTRAOCULAR
     Route: 031
     Dates: start: 20090210, end: 20090210

REACTIONS (1)
  - IRIS HAEMORRHAGE [None]
